FAERS Safety Report 7005288-9 (Version None)
Quarter: 2010Q3

REPORT INFORMATION
  Report Type: 
  Country: None (occurrence: None)
  Receive Date: 20100920
  Receipt Date: 20100920
  Transmission Date: 20110219
  Serious: Yes (Hospitalization)
  Sender: FDA-Public Use
  Company Number: None

PATIENT
  Age: 62 Year
  Sex: Male
  Weight: 98.8842 kg

DRUGS (2)
  1. IFOSFAMIDE [Suspect]
     Indication: SARCOMA
     Dosage: 2.5 G/M2, 21 DAY INT, IV
     Route: 042
     Dates: start: 20100901
  2. DOXORUBICIN HCL [Suspect]
     Dosage: 75 MG/M2, 21 DAY INT, IV
     Route: 042
     Dates: start: 20100901

REACTIONS (2)
  - FEBRILE NEUTROPENIA [None]
  - WHITE BLOOD CELL COUNT DECREASED [None]
